FAERS Safety Report 10663900 (Version 1)
Quarter: 2014Q4

REPORT INFORMATION
  Report Type: Spontaneous
  Country: US (occurrence: None)
  Receive Date: 20141217
  Receipt Date: 20141217
  Transmission Date: 20150529
  Serious: Yes (Other)
  Sender: FDA-Public Use
  Company Number: 201412075

PATIENT
  Age: 56 Year
  Sex: Male

DRUGS (1)
  1. TESTIM [Suspect]
     Active Substance: TESTOSTERONE
     Indication: BLOOD TESTOSTERONE DECREASED
     Route: 062
     Dates: start: 201007, end: 201310

REACTIONS (9)
  - Anhedonia [None]
  - Thrombosis [None]
  - Fear [None]
  - Arterial thrombosis [None]
  - Myocardial infarction [None]
  - Pain [None]
  - Unevaluable event [None]
  - Anxiety [None]
  - Economic problem [None]

NARRATIVE: CASE EVENT DATE: 201310
